FAERS Safety Report 25993294 (Version 1)
Quarter: 2025Q4

REPORT INFORMATION
  Report Type: Report from Study
  Country: EU (occurrence: EU)
  Receive Date: 20251104
  Receipt Date: 20251104
  Transmission Date: 20260119
  Serious: Yes (Hospitalization)
  Sender: ABBVIE
  Company Number: EU-ABBVIE-6528979

PATIENT
  Age: 70 Year
  Sex: Male

DRUGS (1)
  1. FOSCARBIDOPA\FOSLEVODOPA [Suspect]
     Active Substance: FOSCARBIDOPA\FOSLEVODOPA
     Indication: Parkinson^s disease
     Dosage: SD: 0.6 ML CRN: 0.2 ML/H CR: 0.31 ML/H CRH: 0.35 ML/H ED: 0.15 ML
     Route: 058
     Dates: start: 20250923, end: 20251024

REACTIONS (2)
  - Neurodegenerative disorder [Unknown]
  - Dementia [Unknown]

NARRATIVE: CASE EVENT DATE: 20250101
